FAERS Safety Report 21864691 (Version 1)
Quarter: 2023Q1

REPORT INFORMATION
  Report Type: Spontaneous
  Country: US (occurrence: US)
  Receive Date: 20230116
  Receipt Date: 20230116
  Transmission Date: 20230418
  Serious: No
  Sender: FDA-Public Use
  Company Number: US-drreddys-SPO/USA/22/0158951

PATIENT
  Age: 77 Year
  Sex: Male

DRUGS (24)
  1. LENALIDOMIDE [Suspect]
     Active Substance: LENALIDOMIDE
     Indication: Plasma cell myeloma
     Dosage: ON DAYS 1-21, THEN OFF FOR 7 DAYS OF A 28 DAY CYCLE
     Route: 048
     Dates: start: 202211
  2. CARVEDILOL [Concomitant]
     Active Substance: CARVEDILOL
     Indication: Product used for unknown indication
  3. ALLOPURINOL [Concomitant]
     Active Substance: ALLOPURINOL
     Indication: Product used for unknown indication
  4. LATANOPROST [Concomitant]
     Active Substance: LATANOPROST
     Indication: Product used for unknown indication
  5. LOSARTAN POT TAB 100MG [Concomitant]
     Indication: Product used for unknown indication
  6. ATORVASTATIN TAB 80MG [Concomitant]
     Indication: Product used for unknown indication
  7. B COMPLEX CAP [Concomitant]
     Indication: Product used for unknown indication
  8. BUMETANIDE TAB 2MG [Concomitant]
     Indication: Product used for unknown indication
  9. FOLIC ACID TAB 800MCG [Concomitant]
     Indication: Product used for unknown indication
  10. LIPOIC ACID CAP 150MG [Concomitant]
     Indication: Product used for unknown indication
  11. POTASSIUM CH PAC 20MEQ [Concomitant]
     Indication: Product used for unknown indication
     Dosage: PAC 20MEQ
  12. SPIRONOLACTO TAB 100MG [Concomitant]
     Indication: Product used for unknown indication
  13. VITAMIN 3 TAB 25MCG [Concomitant]
     Indication: Product used for unknown indication
     Dosage: 3 TAB 25MCG
  14. MESALAMINE [Concomitant]
     Active Substance: MESALAMINE
     Indication: Product used for unknown indication
  15. ELIQUIS [Concomitant]
     Active Substance: APIXABAN
     Indication: Product used for unknown indication
  16. CIALIS TAB 20MG [Concomitant]
     Indication: Product used for unknown indication
  17. PRADAXA CAP 150MG [Concomitant]
     Indication: Product used for unknown indication
  18. ACYCLOVIR TAB 800MG [Concomitant]
     Indication: Product used for unknown indication
  19. ATOVAQUONE SUS 750MG/5ML [Concomitant]
     Indication: Product used for unknown indication
     Dosage: 750MG/5ML
  20. DEXAMETHASON TAB 6MG [Concomitant]
     Indication: Product used for unknown indication
  21. VELCADE SOL 3.5MG [Concomitant]
     Indication: Product used for unknown indication
  22. DOXYCYCLINE [Concomitant]
     Active Substance: DOXYCYCLINE
     Indication: Product used for unknown indication
  23. KETOCONAZOLE [Concomitant]
     Active Substance: KETOCONAZOLE
     Indication: Product used for unknown indication
  24. LISINOPRIL [Concomitant]
     Active Substance: LISINOPRIL
     Indication: Product used for unknown indication

REACTIONS (2)
  - Platelet count decreased [Not Recovered/Not Resolved]
  - Product use issue [Unknown]
